FAERS Safety Report 7373330-1 (Version None)
Quarter: 2011Q1

REPORT INFORMATION
  Report Type: 
  Country: None (occurrence: None)
  Receive Date: 20110324
  Receipt Date: 20110318
  Transmission Date: 20110831
  Serious: Yes (Other)
  Sender: FDA-Public Use
  Company Number: US-RB-018084-10

PATIENT
  Sex: Female

DRUGS (5)
  1. SUBUTEX [Suspect]
     Indication: DRUG DEPENDENCE
     Route: 064
     Dates: start: 20100818
  2. VALIUM [Suspect]
     Indication: MATERNAL CONDITION AFFECTING FOETUS
     Route: 064
     Dates: start: 20100401
  3. SUBOXONE [Suspect]
     Indication: DRUG DEPENDENCE
     Route: 064
     Dates: start: 20100201, end: 20100817
  4. VALIUM [Suspect]
     Route: 064
     Dates: start: 20100301, end: 20100401
  5. VALIUM [Suspect]
     Route: 064
     Dates: end: 20100101

REACTIONS (3)
  - PREMATURE BABY [None]
  - DYSPNOEA [None]
  - DRUG EXPOSURE DURING PREGNANCY [None]
